FAERS Safety Report 17577190 (Version 1)
Quarter: 2020Q1

REPORT INFORMATION
  Report Type: Spontaneous
  Country: FR (occurrence: FR)
  Receive Date: 20200324
  Receipt Date: 20200324
  Transmission Date: 20200409
  Serious: Yes (Hospitalization)
  Sender: FDA-Public Use
  Company Number: FR-MYLANLABS-2020M1030006

PATIENT
  Age: 61 Year
  Sex: Female
  Weight: 103 kg

DRUGS (7)
  1. ALPRAZOLAM. [Concomitant]
     Active Substance: ALPRAZOLAM
     Dosage: UNK
  2. JANUVIA [Suspect]
     Active Substance: SITAGLIPTIN PHOSPHATE
     Indication: TYPE 2 DIABETES MELLITUS
     Dosage: 50 MILLIGRAM, QD
     Route: 048
     Dates: start: 201905, end: 20191224
  3. ATORVASTATIN [Suspect]
     Active Substance: ATORVASTATIN
     Indication: DYSLIPIDAEMIA
     Dosage: 10 MILLIGRAM, QD
     Route: 048
     Dates: start: 2015, end: 20200120
  4. DIOSMINE [Concomitant]
     Active Substance: DIOSMIN
     Dosage: UNK
  5. RABEPRAZOLE [Suspect]
     Active Substance: RABEPRAZOLE
     Indication: PRODUCT USED FOR UNKNOWN INDICATION
     Dosage: 10 MILLIGRAM, QD
     Route: 048
     Dates: start: 2016, end: 20200121
  6. STAGID [Suspect]
     Active Substance: METFORMIN PAMOATE
     Indication: TYPE 2 DIABETES MELLITUS
     Dosage: 2100 MILLIGRAM, QD
     Route: 048
     Dates: start: 2015, end: 20191223
  7. LAROXYL [Concomitant]
     Active Substance: AMITRIPTYLINE HYDROCHLORIDE
     Dosage: UNK

REACTIONS (1)
  - Tubulointerstitial nephritis and uveitis syndrome [Recovering/Resolving]

NARRATIVE: CASE EVENT DATE: 201911
